FAERS Safety Report 5708970-6 (Version None)
Quarter: 2008Q2

REPORT INFORMATION
  Report Type: 
  Country: None (occurrence: None)
  Receive Date: 20080414
  Receipt Date: 20080414
  Transmission Date: 20081010
  Serious: Yes (Hospitalization)
  Sender: FDA-Public Use
  Company Number: None

PATIENT
  Age: 23 Year
  Sex: Female

DRUGS (1)
  1. ISOVUE-300 [Suspect]
     Indication: SCAN WITH CONTRAST
     Dosage: 125CC ONCE IV
     Route: 042
     Dates: start: 20080203, end: 20080203

REACTIONS (5)
  - COUGH [None]
  - DYSPHONIA [None]
  - SNEEZING [None]
  - SWELLING FACE [None]
  - URTICARIA [None]
